FAERS Safety Report 7866092-2 (Version None)
Quarter: 2011Q4

REPORT INFORMATION
  Report Type: 
  Country: None (occurrence: None)
  Receive Date: 20111028
  Receipt Date: 20110414
  Transmission Date: 20120403
  Serious: No
  Sender: FDA-Public Use
  Company Number: US-GLAXOSMITHKLINE-A0923863A

PATIENT
  Age: 65 Year
  Sex: Male

DRUGS (6)
  1. ADVAIR DISKUS 100/50 [Suspect]
     Indication: WHEEZING
     Route: 055
  2. LYRICA [Concomitant]
  3. NORVASC [Concomitant]
  4. LOVAZA [Concomitant]
  5. DIOVAN HCT [Concomitant]
  6. NEXIUM [Concomitant]

REACTIONS (1)
  - DYSPHONIA [None]
